FAERS Safety Report 7796607-4 (Version None)
Quarter: 2011Q4

REPORT INFORMATION
  Report Type: 
  Country: None (occurrence: None)
  Receive Date: 20111005
  Receipt Date: 20110921
  Transmission Date: 20120403
  Serious: Yes (Hospitalization)
  Sender: FDA-Public Use
  Company Number: SE-ELI_LILLY_AND_COMPANY-SE201109007439

PATIENT
  Age: 35 Year
  Sex: Female

DRUGS (1)
  1. OLANZAPINE [Suspect]
     Indication: SCHIZOPHRENIA
     Dosage: 300 MG, EVERY SECOND WEEK
     Dates: start: 20110906

REACTIONS (3)
  - MYALGIA [None]
  - SOMNOLENCE [None]
  - DYSSTASIA [None]
